FAERS Safety Report 6030349-0 (Version None)
Quarter: 2009Q1

REPORT INFORMATION
  Report Type: 
  Country: None (occurrence: None)
  Receive Date: 20090107
  Receipt Date: 20081231
  Transmission Date: 20090719
  Serious: Yes (Other)
  Sender: FDA-Public Use
  Company Number: US-ASTRAZENECA-2006UW27789

PATIENT
  Age: 652 Month
  Sex: Male
  Weight: 137 kg

DRUGS (12)
  1. SEROQUEL [Suspect]
     Indication: DEPRESSION
     Dosage: 25 MG, 50 MG, 100 MG, 200 MG
     Route: 048
     Dates: start: 20021017, end: 20061001
  2. KLONOPIN [Concomitant]
     Dates: start: 20030101
  3. WELLBUTRIN [Concomitant]
  4. PAXIL [Concomitant]
  5. DIAZEPAM [Concomitant]
  6. TOPROL-XL [Concomitant]
     Route: 048
  7. HYZAAR [Concomitant]
  8. ZOCOR [Concomitant]
  9. OXYCONTIN [Concomitant]
  10. ZANAFLEX [Concomitant]
  11. ATIVAN [Concomitant]
     Route: 048
  12. NEURONTIN [Concomitant]
     Route: 048
     Dates: start: 20030101

REACTIONS (7)
  - DIABETIC COMA [None]
  - DIABETIC KETOACIDOSIS [None]
  - GLYCOSURIA [None]
  - MALIGNANT MELANOMA [None]
  - NEUROPATHY PERIPHERAL [None]
  - TYPE 2 DIABETES MELLITUS [None]
  - URINARY TRACT DISORDER [None]
